FAERS Safety Report 25343133 (Version 1)
Quarter: 2025Q2

REPORT INFORMATION
  Report Type: Spontaneous
  Country: US (occurrence: US)
  Receive Date: 20250521
  Receipt Date: 20250521
  Transmission Date: 20250716
  Serious: Yes (Other)
  Sender: PFIZER
  Company Number: US-PFIZER INC-PV202500059728

PATIENT
  Age: 17 Year
  Sex: Female

DRUGS (5)
  1. ESTROGENS, CONJUGATED [Suspect]
     Active Substance: ESTROGENS, CONJUGATED
     Route: 048
  2. ESTRADIOL [Suspect]
     Active Substance: ESTRADIOL
     Route: 048
  3. NORETHINDRONE ACETATE AND ETHINYL ESTRADIOL [Suspect]
     Active Substance: ETHINYL ESTRADIOL\NORETHINDRONE ACETATE
     Route: 048
  4. NORETHINDRONE ACETATE [Suspect]
     Active Substance: NORETHINDRONE ACETATE
     Indication: Primary hypogonadism
     Dosage: 10 MG, DAILY (QD)
     Route: 048
  5. NORETHINDRONE ACETATE [Suspect]
     Active Substance: NORETHINDRONE ACETATE
     Indication: Puberty
     Dosage: 5 MG, DAILY (QD)
     Route: 048

REACTIONS (1)
  - Seizure [Recovering/Resolving]
